FAERS Safety Report 4531700-0 (Version None)
Quarter: 2004Q4

REPORT INFORMATION
  Report Type: 
  Country: None (occurrence: None)
  Receive Date: 20041216
  Receipt Date: 20041130
  Transmission Date: 20050328
  Serious: Yes (Hospitalization)
  Sender: FDA-Public Use
  Company Number: USA040465841

PATIENT
  Age: 61 Year
  Sex: Female

DRUGS (1)
  1. FORTEO [Suspect]
     Indication: OSTEOPOROSIS
     Dates: start: 20040423

REACTIONS (10)
  - CONDITION AGGRAVATED [None]
  - DIZZINESS [None]
  - HEART RATE INCREASED [None]
  - INTERVERTEBRAL DISC DISORDER [None]
  - JOINT RANGE OF MOTION DECREASED [None]
  - MEDICAL DEVICE COMPLICATION [None]
  - NERVE COMPRESSION [None]
  - PAIN [None]
  - PHARMACEUTICAL PRODUCT COMPLAINT [None]
  - POST PROCEDURAL COMPLICATION [None]
